FAERS Safety Report 19919835 (Version 4)
Quarter: 2025Q3

REPORT INFORMATION
  Report Type: Spontaneous
  Country: US (occurrence: US)
  Receive Date: 20211005
  Receipt Date: 20250813
  Transmission Date: 20251020
  Serious: Yes (Hospitalization, Disabling, Other)
  Sender: PURDUE
  Company Number: US-PURDUE-USA-2021-0285518

PATIENT
  Sex: Female

DRUGS (13)
  1. OXYCONTIN [Suspect]
     Active Substance: OXYCODONE HYDROCHLORIDE
     Indication: Pain
     Route: 048
     Dates: start: 1998
  2. OXYCONTIN [Suspect]
     Active Substance: OXYCODONE HYDROCHLORIDE
     Route: 048
     Dates: start: 2000, end: 201506
  3. MORPHINE SULFATE [Suspect]
     Active Substance: MORPHINE SULFATE
     Indication: Pain
     Route: 048
     Dates: start: 20150623
  4. HYDROCODONE BITARTRATE [Suspect]
     Active Substance: HYDROCODONE BITARTRATE
     Indication: Breakthrough pain
     Route: 065
  5. OXYCODONE HYDROCHLORIDE [Suspect]
     Active Substance: OXYCODONE HYDROCHLORIDE
     Indication: Pain
     Route: 048
  6. OXYCODONE HYDROCHLORIDE [Suspect]
     Active Substance: OXYCODONE HYDROCHLORIDE
     Indication: Pain
     Route: 048
  7. ACETAMINOPHEN\OXYCODONE HYDROCHLORIDE [Suspect]
     Active Substance: ACETAMINOPHEN\OXYCODONE HYDROCHLORIDE
     Indication: Pain
     Route: 048
  8. HYDROCODONE BITARTRATE AND ACETAMINOPHEN [Suspect]
     Active Substance: ACETAMINOPHEN\HYDROCODONE BITARTRATE
     Indication: Pain
     Route: 048
  9. TRAMADOL [Suspect]
     Active Substance: TRAMADOL
     Indication: Pain
     Route: 048
  10. VALIUM [Suspect]
     Active Substance: DIAZEPAM
     Indication: Migraine
     Route: 065
  11. VALIUM [Suspect]
     Active Substance: DIAZEPAM
     Indication: Nausea
  12. VALIUM [Suspect]
     Active Substance: DIAZEPAM
     Indication: Back pain
  13. VALIUM [Suspect]
     Active Substance: DIAZEPAM
     Indication: Vomiting

REACTIONS (23)
  - Suicide attempt [Unknown]
  - Disability [Unknown]
  - Suicidal ideation [Unknown]
  - Bipolar disorder [Unknown]
  - Overdose [Unknown]
  - Drug dependence [Not Recovered/Not Resolved]
  - Psychotic disorder [Unknown]
  - Post-traumatic stress disorder [Unknown]
  - Depression [Unknown]
  - Pain [Unknown]
  - Emotional distress [Unknown]
  - Drug withdrawal syndrome [Unknown]
  - Sleep disorder [Unknown]
  - Constipation [Unknown]
  - General physical health deterioration [Unknown]
  - Irritability [Unknown]
  - Anger [Unknown]
  - Anxiety [Unknown]
  - Loss of personal independence in daily activities [Unknown]
  - Learning disability [Unknown]
  - Developmental delay [Unknown]
  - Impaired work ability [Unknown]
  - Unevaluable event [Unknown]

NARRATIVE: CASE EVENT DATE: 20010101
